FAERS Safety Report 10480117 (Version 4)
Quarter: 2015Q1

REPORT INFORMATION
  Report Type: Report from Study
  Country: US (occurrence: US)
  Receive Date: 20140929
  Receipt Date: 20150119
  Transmission Date: 20150720
  Serious: Yes (Other)
  Sender: FDA-Public Use
  Company Number: US-BIOGENIDEC-2014BI097600

PATIENT
  Age: 66 Year
  Sex: Male
  Weight: 95 kg

DRUGS (10)
  1. TAMSULOSIN HCL [Concomitant]
     Active Substance: TAMSULOSIN
  2. METOPROLOL TARTRATE. [Concomitant]
     Active Substance: METOPROLOL TARTRATE
  3. FLECAINIDE ACETATE. [Concomitant]
     Active Substance: FLECAINIDE ACETATE
  4. ASPIRIN CHEWABLE [Concomitant]
     Active Substance: ASPIRIN
  5. FISH OIL [Concomitant]
     Active Substance: FISH OIL
  6. GAVISCON [Concomitant]
     Active Substance: ALUMINUM HYDROXIDE\MAGNESIUM CARBONATE
  7. AVONEX [Suspect]
     Active Substance: INTERFERON BETA-1A
     Indication: RELAPSING-REMITTING MULTIPLE SCLEROSIS
     Route: 030
     Dates: start: 2001, end: 2001
  8. LISINOPRIL. [Concomitant]
     Active Substance: LISINOPRIL
  9. SIMVASTATIN. [Concomitant]
     Active Substance: SIMVASTATIN
  10. AMANTADINE HCL [Concomitant]
     Active Substance: AMANTADINE HYDROCHLORIDE

REACTIONS (2)
  - Basal cell carcinoma [Unknown]
  - Urticaria [Unknown]

NARRATIVE: CASE EVENT DATE: 20130916
